FAERS Safety Report 17475792 (Version 2)
Quarter: 2020Q2

REPORT INFORMATION
  Report Type: Spontaneous
  Country: US (occurrence: US)
  Receive Date: 20200228
  Receipt Date: 20200409
  Transmission Date: 20200713
  Serious: Yes (Hospitalization)
  Sender: FDA-Public Use
  Company Number: US-TASMAN PHARMA, INC.-2020TSM00069

PATIENT
  Age: 33 Year
  Sex: Male
  Weight: 68.93 kg

DRUGS (15)
  1. THORAZINE [Concomitant]
     Active Substance: CHLORPROMAZINE
  2. HALDOL [Concomitant]
     Active Substance: HALOPERIDOL
     Dosage: UNK
     Dates: start: 202001, end: 2020
  3. NAMENDA [Concomitant]
     Active Substance: MEMANTINE HYDROCHLORIDE
  4. HYDROXYZINE PAMOATE. [Concomitant]
     Active Substance: HYDROXYZINE PAMOATE
     Dosage: UNK
     Dates: end: 2020
  5. VALIUM [Concomitant]
     Active Substance: DIAZEPAM
     Dosage: UNK
  6. VALIUM [Concomitant]
     Active Substance: DIAZEPAM
     Dosage: UNK
  7. LOXAPINE. [Concomitant]
     Active Substance: LOXAPINE
  8. METOPROLOL. [Concomitant]
     Active Substance: METOPROLOL
  9. CLOZAPINE. [Suspect]
     Active Substance: CLOZAPINE
     Indication: SCHIZOPHRENIA
     Dosage: 25 MG, 2X/DAY
     Dates: start: 20200131, end: 202002
  10. CLOZAPINE. [Suspect]
     Active Substance: CLOZAPINE
     Dosage: 50 MG, 2X/DAY
     Dates: start: 202002, end: 202002
  11. CLOZAPINE. [Suspect]
     Active Substance: CLOZAPINE
     Dosage: 50 MG, 1X/DAY IN THE MORNING
     Dates: start: 202002
  12. LITHIUM. [Concomitant]
     Active Substance: LITHIUM
     Dosage: UNK
     Dates: start: 202001, end: 2020
  13. CLOZAPINE. [Suspect]
     Active Substance: CLOZAPINE
     Dosage: 100 MG, 1X/DAY IN THE EVENING
     Dates: start: 202002
  14. QUETIAPINE. [Concomitant]
     Active Substance: QUETIAPINE
     Dosage: UNK
     Dates: end: 2020
  15. THIAMINE. [Concomitant]
     Active Substance: THIAMINE

REACTIONS (2)
  - Schizophrenia [Not Recovered/Not Resolved]
  - Drug ineffective [Unknown]

NARRATIVE: CASE EVENT DATE: 202002
